FAERS Safety Report 6228359-3 (Version None)
Quarter: 2009Q2

REPORT INFORMATION
  Report Type: 
  Country: None (occurrence: None)
  Receive Date: 20090612
  Receipt Date: 20090610
  Transmission Date: 20091009
  Serious: Yes (Hospitalization)
  Sender: FDA-Public Use
  Company Number: US-PFIZER INC-2008096245

PATIENT
  Sex: Male
  Weight: 74 kg

DRUGS (12)
  1. SILDENAFIL CITRATE [Suspect]
     Indication: PULMONARY ARTERIAL HYPERTENSION
     Dosage: 80 MG, 3X/DAY
     Route: 048
     Dates: start: 20050913
  2. EPOPROSTENOL [Concomitant]
  3. FUROSEMIDE [Concomitant]
     Dosage: UNK
     Route: 048
     Dates: start: 20031201
  4. OXYGEN [Concomitant]
     Dosage: UNK
     Route: 055
     Dates: start: 20041001
  5. SPIRONOLACTONE [Concomitant]
     Dosage: UNK
     Route: 048
     Dates: start: 20031201
  6. LOPERAMIDE [Concomitant]
     Dosage: UNK
     Route: 048
     Dates: start: 20041001
  7. POTASSIUM [Concomitant]
     Dosage: UNK
     Route: 048
     Dates: start: 20031201
  8. MULTI-VITAMINS [Concomitant]
     Dosage: UNK
     Route: 048
     Dates: start: 20041001
  9. ALLOPURINOL [Concomitant]
     Dosage: UNK
     Route: 048
     Dates: start: 20061001
  10. FERROUS SULFATE [Concomitant]
     Dosage: UNK
     Route: 048
     Dates: start: 20071001
  11. ESOMEPRAZOLE [Concomitant]
     Dosage: UNK
     Route: 048
     Dates: start: 20080101
  12. WARFARIN SODIUM [Concomitant]
     Dosage: UNK
     Route: 048
     Dates: start: 20040101

REACTIONS (1)
  - INGUINAL HERNIA [None]
